FAERS Safety Report 20786543 (Version 1)
Quarter: 2022Q2

REPORT INFORMATION
  Report Type: Spontaneous
  Country: PL (occurrence: PL)
  Receive Date: 20220505
  Receipt Date: 20220505
  Transmission Date: 20220720
  Serious: Yes (Death, Hospitalization)
  Sender: FDA-Public Use
  Company Number: PL-STRIDES ARCOLAB LIMITED-2022SP004951

PATIENT
  Sex: Male

DRUGS (7)
  1. TACROLIMUS [Suspect]
     Active Substance: TACROLIMUS
     Indication: Liver transplant
     Dosage: UNK
     Route: 065
  2. URSODIOL [Suspect]
     Active Substance: URSODIOL
     Indication: Cholestasis
     Dosage: 20 MILLIGRAM/KILOGRAM (PER DAY)
     Route: 065
  3. VITAMIN K [Concomitant]
     Active Substance: PHYTONADIONE
     Indication: Coagulopathy
     Dosage: UNK
     Route: 065
  4. VITAMIN K [Concomitant]
     Active Substance: PHYTONADIONE
     Indication: Hypocoagulable state
     Dosage: UNK, VITAMIN K SUPPLEMENTATION
     Route: 065
  5. VITAMIN K [Concomitant]
     Active Substance: PHYTONADIONE
     Dosage: UNK
     Route: 042
  6. DEXTROSE [Concomitant]
     Active Substance: DEXTROSE
     Indication: Hypoglycaemia
     Dosage: UNK
     Route: 065
  7. PHENOBARBITAL [Concomitant]
     Active Substance: PHENOBARBITAL
     Indication: Product used for unknown indication
     Dosage: UNK
     Route: 065

REACTIONS (6)
  - Sepsis [Fatal]
  - Adrenal haemorrhage [Fatal]
  - Disseminated intravascular coagulation [Fatal]
  - Multiple organ dysfunction syndrome [Fatal]
  - Cytomegalovirus infection [Recovered/Resolved]
  - Drug ineffective for unapproved indication [Unknown]
